FAERS Safety Report 7247525-1 (Version None)
Quarter: 2011Q1

REPORT INFORMATION
  Report Type: 
  Country: None (occurrence: None)
  Receive Date: 20110127
  Receipt Date: 20100218
  Transmission Date: 20110831
  Serious: No
  Sender: FDA-Public Use
  Company Number: US-MYLANLABS-2010S1002895

PATIENT
  Sex: Female

DRUGS (7)
  1. DIGOXIN [Suspect]
  2. ATENOLOL [Suspect]
  3. TOPROL-XL [Suspect]
  4. BISOPROLOL FUMARATE [Suspect]
  5. VERAPAMIL [Suspect]
  6. DILTIAZEM [Suspect]
  7. BYSTOLIC [Suspect]

REACTIONS (1)
  - DRUG INTOLERANCE [None]
